FAERS Safety Report 14364357 (Version 1)
Quarter: 2018Q1

REPORT INFORMATION
  Report Type: Spontaneous
  Country: US (occurrence: US)
  Receive Date: 20180106
  Receipt Date: 20180106
  Transmission Date: 20180509
  Serious: No
  Sender: FDA-Public Use
  Company Number: None

PATIENT
  Age: 63 Year
  Sex: Female
  Weight: 64.41 kg

DRUGS (1)
  1. MAVYRET [Suspect]
     Active Substance: GLECAPREVIR\PIBRENTASVIR
     Indication: HEPATITIS C
     Dosage: DOSE - 100/40 MG?FREQUENCY - 3 TABLETS DAILY?ROUTE - ORAL
     Route: 048
     Dates: start: 20171221

REACTIONS (1)
  - Pruritus [None]

NARRATIVE: CASE EVENT DATE: 20180105
